FAERS Safety Report 17514836 (Version 3)
Quarter: 2020Q2

REPORT INFORMATION
  Report Type: Spontaneous
  Country: US (occurrence: US)
  Receive Date: 20200309
  Receipt Date: 20200511
  Transmission Date: 20200713
  Serious: Yes (Other)
  Sender: FDA-Public Use
  Company Number: US-BRISTOL-MYERS SQUIBB COMPANY-BMS-2020-018406

PATIENT
  Sex: Female

DRUGS (1)
  1. ORENCIA [Suspect]
     Active Substance: ABATACEPT
     Indication: RHEUMATOID ARTHRITIS
     Dosage: 125 MILLIGRAM, QWK
     Route: 058
     Dates: start: 201910

REACTIONS (7)
  - Neck pain [Unknown]
  - Musculoskeletal pain [Unknown]
  - Stomatitis [Unknown]
  - Cardiac disorder [Unknown]
  - Pain in extremity [Unknown]
  - Mouth swelling [Unknown]
  - Dizziness [Unknown]
